FAERS Safety Report 4394361-X (Version None)
Quarter: 2004Q3

REPORT INFORMATION
  Report Type: 
  Country: None (occurrence: None)
  Receive Date: 20040706
  Receipt Date: 20040628
  Transmission Date: 20050211
  Serious: Yes (Other)
  Sender: FDA-Public Use
  Company Number: 2004221113US

PATIENT

DRUGS (2)
  1. ZYVOX [Suspect]
  2. HEPARIN SODIUM [Suspect]

REACTIONS (1)
  - PANCYTOPENIA [None]
